FAERS Safety Report 15349640 (Version 6)
Quarter: 2018Q4

REPORT INFORMATION
  Report Type: Spontaneous
  Country: US (occurrence: US)
  Receive Date: 20180904
  Receipt Date: 20181126
  Transmission Date: 20190204
  Serious: No
  Sender: FDA-Public Use
  Company Number: US-PFIZER INC-2018351722

PATIENT
  Age: 79 Year
  Sex: Male
  Weight: 108.8 kg

DRUGS (3)
  1. LYRICA [Suspect]
     Active Substance: PREGABALIN
     Indication: PAIN IN EXTREMITY
  2. LYRICA [Suspect]
     Active Substance: PREGABALIN
     Indication: BACK PAIN
     Dosage: 150 MG, DAILY
     Route: 048
     Dates: start: 2017
  3. LYRICA [Suspect]
     Active Substance: PREGABALIN
     Indication: NEUROPATHY PERIPHERAL
     Dosage: 150 MG, 2X/DAY(ONE IN THE MORNING AND ONE AT NIGHT)
     Route: 048
     Dates: start: 2017

REACTIONS (8)
  - Blister [Recovered/Resolved]
  - Peripheral swelling [Unknown]
  - Swelling [Unknown]
  - Pain [Unknown]
  - Sleep disorder [Recovering/Resolving]
  - Hair growth abnormal [Unknown]
  - Skin discolouration [Unknown]
  - Sinus disorder [Unknown]

NARRATIVE: CASE EVENT DATE: 201807
